FAERS Safety Report 8454988-2 (Version None)
Quarter: 2012Q2

REPORT INFORMATION
  Report Type: 
  Country: None (occurrence: None)
  Receive Date: 20120614
  Receipt Date: 20120614
  Transmission Date: 20120825
  Serious: Yes (Other)
  Sender: FDA-Public Use
  Company Number: None

PATIENT
  Age: 49 Year
  Sex: Female

DRUGS (13)
  1. AMBIEN [Concomitant]
  2. AMATRIPTOMINE [Concomitant]
  3. TOPATOL [Concomitant]
  4. PANTOPRAZONE [Concomitant]
  5. VIKODEN [Concomitant]
  6. SULDOTOSONE [Concomitant]
  7. ASPIRIN [Concomitant]
  8. COLANZEPAN [Concomitant]
  9. NAMENDA [Suspect]
     Indication: MOOD SWINGS
     Dosage: ONCE A DAY PO
     Route: 048
  10. GAVOPENTIN [Concomitant]
  11. MELOXICAM [Concomitant]
  12. NUEDEXTA [Suspect]
     Indication: PAIN
     Dosage: 2 TIMES A DAY PO
     Route: 048
  13. LORAZEPAM [Concomitant]

REACTIONS (8)
  - HYPERTENSION [None]
  - MOVEMENT DISORDER [None]
  - MUSCLE DISORDER [None]
  - BODY TEMPERATURE INCREASED [None]
  - FALL [None]
  - CONSTIPATION [None]
  - ARRHYTHMIA [None]
  - MOOD SWINGS [None]
